FAERS Safety Report 8343207-3 (Version None)
Quarter: 2012Q1

REPORT INFORMATION
  Report Type: 
  Country: None (occurrence: None)
  Receive Date: 20120330
  Receipt Date: 20110621
  Transmission Date: 20120608
  Serious: Yes (Other)
  Sender: FDA-Public Use
  Company Number: PHHY2011US55324

PATIENT
  Sex: Male

DRUGS (3)
  1. EXELON [Suspect]
     Dosage: 1 DF, ONE PER DAY (4.6 MG), TRANSDERMAL
     Route: 062
  2. NAMENDA [Suspect]
     Dosage: 2 DF, 5 MG PER DAY
  3. LEXAPRO [Suspect]
     Dosage: 5 MG, PER DAY

REACTIONS (1)
  - HALLUCINATION, VISUAL [None]
